FAERS Safety Report 8478838-3 (Version None)
Quarter: 2012Q2

REPORT INFORMATION
  Report Type: 
  Country: None (occurrence: None)
  Receive Date: 20120629
  Receipt Date: 20120621
  Transmission Date: 20120825
  Serious: Yes (Other)
  Sender: FDA-Public Use
  Company Number: IN-ROCHE-1079454

PATIENT
  Age: 66 Year
  Sex: Male

DRUGS (2)
  1. ENOXAPARIN [Concomitant]
  2. METALYSE [Suspect]
     Indication: ACUTE MYOCARDIAL INFARCTION
     Dosage: DOSE STRENGTH: 0.5 MG/KG
     Route: 042
     Dates: start: 20120519, end: 20120519

REACTIONS (1)
  - ELECTROCARDIOGRAM ST SEGMENT ELEVATION [None]
